FAERS Safety Report 18370559 (Version 5)
Quarter: 2021Q1

REPORT INFORMATION
  Report Type: Report from Study
  Country: BE (occurrence: BE)
  Receive Date: 20201012
  Receipt Date: 20210113
  Transmission Date: 20210419
  Serious: Yes (Hospitalization)
  Sender: FDA-Public Use
  Company Number: BE-ROCHE-2693256

PATIENT
  Age: 51 Year
  Sex: Male
  Weight: 88.7 kg

DRUGS (13)
  1. ALLOPURINOL. [Concomitant]
     Active Substance: ALLOPURINOL
  2. LOPERAMIDE HYDROCHLORIDE. [Concomitant]
     Active Substance: LOPERAMIDE HYDROCHLORIDE
  3. OXYCODONE [Concomitant]
     Active Substance: OXYCODONE
  4. ATEZOLIZUMAB. [Suspect]
     Active Substance: ATEZOLIZUMAB
     Indication: HEAD AND NECK CANCER
     Dosage: ON 15/SEP/2020, HE RECEIVED MOST RECENT DOSE OF ATEZOLIZUMAB PRIOR TO ONSET OF SERIOUS ADVERSE EVENT
     Route: 042
     Dates: start: 20200714
  5. PANTOMED (BELGIUM) [Concomitant]
     Active Substance: PANTOPRAZOLE SODIUM
  6. UREUM [Concomitant]
  7. PERIO?AID [Concomitant]
  8. FENTANYL. [Concomitant]
     Active Substance: FENTANYL
  9. PARACETAMOL [Concomitant]
     Active Substance: ACETAMINOPHEN
  10. XL184 [Suspect]
     Active Substance: CABOZANTINIB
     Indication: HEAD AND NECK CANCER
     Dosage: ON 24/SEP/2020, HE RECEIVED MOST RECENT DOSE OF CABOZANTINIB PRIOR TO ONSET OF SERIOUS ADVERSE EVENT
     Route: 048
     Dates: start: 20200714
  11. OMEPRAZOLE SODIUM [Concomitant]
     Active Substance: OMEPRAZOLE SODIUM
  12. DICLOFENAC SODIUM. [Concomitant]
     Active Substance: DICLOFENAC SODIUM
  13. DENTIO [Concomitant]

REACTIONS (2)
  - Hypothyroidism [Recovered/Resolved]
  - Tumour pain [Recovered/Resolved with Sequelae]

NARRATIVE: CASE EVENT DATE: 20200925
